FAERS Safety Report 5523573-4 (Version None)
Quarter: 2007Q4

REPORT INFORMATION
  Report Type: 
  Country: None (occurrence: None)
  Receive Date: 20071121
  Receipt Date: 20071113
  Transmission Date: 20080405
  Serious: Yes (Death, Life-Threatening)
  Sender: FDA-Public Use
  Company Number: IE-ROCHE-531239

PATIENT
  Age: 59 Year
  Sex: Male

DRUGS (4)
  1. XELODA [Suspect]
     Indication: GASTROOESOPHAGEAL CANCER
     Dosage: GIVEN DURING A THREE-WEEK-CYCLE.
     Route: 048
     Dates: end: 20070401
  2. CISPLATIN [Concomitant]
     Indication: GASTROOESOPHAGEAL CANCER
     Route: 042
     Dates: end: 20070401
  3. EPIRUBICIN [Concomitant]
     Indication: GASTROOESOPHAGEAL CANCER
     Route: 042
     Dates: end: 20070401
  4. CLEXANE [Concomitant]
     Indication: ATRIAL FIBRILLATION
     Route: 058

REACTIONS (3)
  - PULMONARY OEDEMA [None]
  - PULMONARY TOXICITY [None]
  - SEPTIC SHOCK [None]
